FAERS Safety Report 6375128-X (Version None)
Quarter: 2009Q3

REPORT INFORMATION
  Report Type: 
  Country: None (occurrence: None)
  Receive Date: 20090922
  Receipt Date: 20090922
  Transmission Date: 20100115
  Serious: Yes (Death)
  Sender: FDA-Public Use
  Company Number: None

PATIENT
  Sex: Male

DRUGS (1)
  1. REVLIMID [Suspect]
     Indication: MULTIPLE MYELOMA
     Dosage: REVLIMID 15MG 3X/WK POST DIALYSIS ORAL
     Route: 048
     Dates: start: 20081001, end: 20090301

REACTIONS (1)
  - CARDIAC ARREST [None]
